FAERS Safety Report 4684909-X (Version None)
Quarter: 2005Q2

REPORT INFORMATION
  Report Type: 
  Country: None (occurrence: None)
  Receive Date: 20050606
  Receipt Date: 20050606
  Transmission Date: 20051028
  Serious: No
  Sender: FDA-Public Use
  Company Number: None

PATIENT
  Age: 58 Year
  Sex: Female

DRUGS (4)
  1. NEURONTIN [Suspect]
     Indication: BREAST CANCER
     Dosage: 300 MG PO TID
     Route: 048
     Dates: start: 20041201
  2. NEURONTIN [Suspect]
     Indication: NEUROPATHY
     Dosage: 300 MG PO TID
     Route: 048
     Dates: start: 20041201
  3. NEURONTIN [Suspect]
     Indication: BREAST CANCER
     Dosage: 300 MG PO TID
     Route: 048
     Dates: start: 20050101
  4. NEURONTIN [Suspect]
     Indication: NEUROPATHY
     Dosage: 300 MG PO TID
     Route: 048
     Dates: start: 20050101

REACTIONS (2)
  - RASH [None]
  - THERAPEUTIC RESPONSE UNEXPECTED WITH DRUG SUBSTITUTION [None]
